FAERS Safety Report 7633247-1 (Version None)
Quarter: 2011Q3

REPORT INFORMATION
  Report Type: 
  Country: None (occurrence: None)
  Receive Date: 20110725
  Receipt Date: 20110718
  Transmission Date: 20111222
  Serious: Yes (Death, Hospitalization)
  Sender: FDA-Public Use
  Company Number: BR-ROCHE-790821

PATIENT
  Sex: Female
  Weight: 65 kg

DRUGS (4)
  1. PEGINTERFERON ALFA-2A [Suspect]
     Indication: HEPATITIS C
     Route: 058
     Dates: start: 20110425
  2. RIBAVIRIN [Suspect]
     Indication: HEPATITIS C
     Route: 048
     Dates: start: 20110425
  3. PANTOPRAZOLE [Concomitant]
     Indication: GASTRITIS
     Route: 048
     Dates: start: 20110628
  4. ACETAMINOPHEN [Concomitant]
     Dosage: WHEN NEEDED
     Route: 048
     Dates: start: 20110708

REACTIONS (1)
  - SEPTIC SHOCK [None]
